FAERS Safety Report 16291786 (Version 1)
Quarter: 2019Q2

REPORT INFORMATION
  Report Type: Spontaneous
  Country: US (occurrence: US)
  Receive Date: 20190509
  Receipt Date: 20190509
  Transmission Date: 20190711
  Serious: Yes (Other)
  Sender: FDA-Public Use
  Company Number: US-FRESENIUS KABI-FK201905262

PATIENT
  Age: 5 Year
  Sex: Female

DRUGS (7)
  1. METHOTREXATE. [Suspect]
     Active Substance: METHOTREXATE
     Indication: CEREBELLAR TUMOUR
     Route: 065
  2. ETOPOSIDE (MANUFACTURER UNKNOWN) [Suspect]
     Active Substance: ETOPOSIDE
     Indication: CEREBELLAR TUMOUR
     Route: 065
  3. CYCLOPHOSPHAMIDE. [Suspect]
     Active Substance: CYCLOPHOSPHAMIDE
     Indication: CEREBELLAR TUMOUR
     Route: 065
  4. CISPLATIN (MANUFACTURER UNKNOWN) [Suspect]
     Active Substance: CISPLATIN
     Indication: CEREBELLAR TUMOUR
     Route: 065
  5. CARBOPLATIN (MANUFACTURER UNKNOWN) [Suspect]
     Active Substance: CARBOPLATIN
     Indication: CEREBELLAR TUMOUR
     Route: 065
  6. THIOTEPA. [Suspect]
     Active Substance: THIOTEPA
     Indication: CEREBELLAR TUMOUR
     Route: 065
  7. VINCRISTINE [Suspect]
     Active Substance: VINCRISTINE
     Indication: CEREBELLAR TUMOUR
     Route: 065

REACTIONS (1)
  - Venoocclusive liver disease [Unknown]
